FAERS Safety Report 9817562 (Version 1)
Quarter: 2014Q1

REPORT INFORMATION
  Report Type: Spontaneous
  Country: FR (occurrence: FR)
  Receive Date: 20140115
  Receipt Date: 20140115
  Transmission Date: 20141002
  Serious: Yes (Hospitalization)
  Sender: FDA-Public Use
  Company Number: FR-ASTRAZENECA-2014SE01476

PATIENT
  Age: 52 Year
  Sex: Female
  Weight: 46 kg

DRUGS (6)
  1. CAPRELSA [Suspect]
     Indication: MEDULLARY THYROID CANCER
     Route: 048
     Dates: start: 20131018
  2. CAPRELSA [Suspect]
     Indication: MEDULLARY THYROID CANCER
     Route: 048
     Dates: end: 20131104
  3. CAPRELSA [Suspect]
     Indication: MEDULLARY THYROID CANCER
     Route: 048
     Dates: start: 20131105
  4. CALCIPARINE [Concomitant]
     Indication: DEEP VEIN THROMBOSIS
     Route: 058
  5. CALCIPARINE [Concomitant]
     Indication: PULMONARY EMBOLISM
     Route: 058
  6. METOPIRONE [Concomitant]
     Indication: CUSHING^S SYNDROME
     Dates: start: 2013

REACTIONS (3)
  - Renal failure [Not Recovered/Not Resolved]
  - Platelet aggregation abnormal [Not Recovered/Not Resolved]
  - Haemorrhage [Not Recovered/Not Resolved]
